FAERS Safety Report 10261930 (Version 1)
Quarter: 2014Q2

REPORT INFORMATION
  Report Type: Spontaneous
  Country: US (occurrence: US)
  Receive Date: 20140626
  Receipt Date: 20140626
  Transmission Date: 20141212
  Serious: No
  Sender: FDA-Public Use
  Company Number: QA-ASTRAZENECA-2014SE44640

PATIENT
  Age: 55 Year
  Sex: Female

DRUGS (1)
  1. SEROQUEL XR [Suspect]
     Dosage: UNKNOWN DAILY
     Route: 048
     Dates: start: 20140605

REACTIONS (1)
  - Food craving [Not Recovered/Not Resolved]
